FAERS Safety Report 8859290 (Version 2)
Quarter: 2013Q3

REPORT INFORMATION
  Report Type: Spontaneous
  Country: US (occurrence: US)
  Receive Date: 20121024
  Receipt Date: 20130711
  Transmission Date: 20140515
  Serious: No
  Sender: FDA-Public Use
  Company Number: US-ASTRAZENECA-2012SE21886

PATIENT
  Age: 69 Year
  Sex: Male

DRUGS (6)
  1. TOPROL XL [Suspect]
     Route: 048
  2. PRILOSEC [Suspect]
     Route: 048
  3. LIPITOR [Concomitant]
  4. TAMZULOSINE [Concomitant]
  5. ASPIRIN [Concomitant]
  6. BACTRIM DS [Concomitant]

REACTIONS (4)
  - Speech disorder [Unknown]
  - Gastrooesophageal reflux disease [Unknown]
  - Prostatic disorder [Unknown]
  - Chest pain [Unknown]
